FAERS Safety Report 6619056-0 (Version None)
Quarter: 2010Q1

REPORT INFORMATION
  Report Type: 
  Country: None (occurrence: None)
  Receive Date: 20100308
  Receipt Date: 20100225
  Transmission Date: 20100710
  Serious: Yes (Death, Other)
  Sender: FDA-Public Use
  Company Number: JP-PFIZER INC-2009315484

PATIENT
  Age: 70 Year
  Sex: Male
  Weight: 67 kg

DRUGS (10)
  1. SILDENAFIL CITRATE [Suspect]
     Indication: PULMONARY ARTERIAL HYPERTENSION
     Dosage: 20 MG, 2X/DAY
     Route: 048
     Dates: start: 20090919, end: 20091110
  2. TRACLEER [Concomitant]
     Route: 048
     Dates: start: 20090812, end: 20091110
  3. WARFARIN [Concomitant]
     Route: 048
     Dates: end: 20091110
  4. FUROSEMIDE [Concomitant]
     Route: 048
     Dates: end: 20091110
  5. LASIX [Concomitant]
     Route: 042
     Dates: end: 20091110
  6. PARIET [Concomitant]
     Route: 048
     Dates: end: 20091110
  7. AZULFIDINE [Concomitant]
     Route: 048
     Dates: end: 20091110
  8. CONTOMIN [Concomitant]
     Route: 048
     Dates: end: 20091110
  9. FLUNITRAZEPAM [Concomitant]
     Route: 048
     Dates: end: 20091110
  10. TASMOLIN [Concomitant]
     Route: 048
     Dates: end: 20091110

REACTIONS (2)
  - DYSPHAGIA [None]
  - PULMONARY HYPERTENSION [None]
